FAERS Safety Report 7494828-1 (Version None)
Quarter: 2011Q2

REPORT INFORMATION
  Report Type: 
  Country: None (occurrence: None)
  Receive Date: 20110520
  Receipt Date: 20110513
  Transmission Date: 20111010
  Serious: No
  Sender: FDA-Public Use
  Company Number: B0711413A

PATIENT
  Sex: Female

DRUGS (5)
  1. SELEGILINE HCL [Concomitant]
     Dosage: 7.5MG PER DAY
     Route: 048
     Dates: start: 20091106
  2. NAUZELIN [Concomitant]
     Dosage: 30MG PER DAY
     Route: 048
     Dates: start: 20091030
  3. MENEST [Concomitant]
     Dosage: 450MG PER DAY
     Route: 048
     Dates: start: 20091016
  4. REQUIP [Suspect]
     Route: 048
     Dates: start: 20110129, end: 20110320
  5. GASMOTIN [Concomitant]
     Dosage: 15MG PER DAY
     Route: 048
     Dates: start: 20100604

REACTIONS (4)
  - OEDEMA PERIPHERAL [None]
  - ONYCHOLYSIS [None]
  - ERYTHEMA [None]
  - PHOTOONYCHOLYSIS [None]
